FAERS Safety Report 6104453-2 (Version None)
Quarter: 2009Q1

REPORT INFORMATION
  Report Type: 
  Country: None (occurrence: None)
  Receive Date: 20090227
  Receipt Date: 20080924
  Transmission Date: 20090719
  Serious: Yes (Hospitalization)
  Sender: FDA-Public Use
  Company Number: RB-4338-2008

PATIENT
  Sex: Female

DRUGS (6)
  1. SUBOXONE [Suspect]
     Indication: DRUG DEPENDENCE
     Dosage: 8 MG BID TRANSPLACENTAL
     Route: 064
     Dates: start: 20071001, end: 20071101
  2. SUBUTEX [Suspect]
     Indication: DRUG DEPENDENCE
     Dosage: 8 MG TID TRANSPLACENTAL, 8 MG QID TRANSPLACENTAL
     Route: 064
     Dates: start: 20071101, end: 20080201
  3. SUBUTEX [Suspect]
     Indication: DRUG DEPENDENCE
     Dosage: 8 MG TID TRANSPLACENTAL, 8 MG QID TRANSPLACENTAL
     Route: 064
     Dates: start: 20080201, end: 20080625
  4. VALIUM [Suspect]
     Indication: ANXIETY
     Dosage: 2 MG QID TRANSPLACENTAL
     Route: 064
     Dates: end: 20080625
  5. DOXEPIN HCL [Suspect]
     Indication: ANXIETY
     Dosage: 75 MG TRANSPLACENTAL
     Route: 064
     Dates: end: 20080625
  6. DOXEPIN HCL [Suspect]
     Indication: DEPRESSION
     Dosage: 75 MG TRANSPLACENTAL
     Route: 064
     Dates: end: 20080625

REACTIONS (2)
  - DRUG EXPOSURE DURING PREGNANCY [None]
  - DRUG WITHDRAWAL SYNDROME NEONATAL [None]
